FAERS Safety Report 9718748 (Version 4)
Quarter: 2014Q1

REPORT INFORMATION
  Report Type: Spontaneous
  Country: US (occurrence: US)
  Receive Date: 20131127
  Receipt Date: 20140214
  Transmission Date: 20141002
  Serious: Yes (Other)
  Sender: FDA-Public Use
  Company Number: US-VERTEX PHARMACEUTICALS INC-2013-011428

PATIENT
  Age: 57 Year
  Sex: Female
  Weight: 67.57 kg

DRUGS (5)
  1. INCIVEK [Suspect]
     Indication: HEPATITIS C
     Dosage: 750 MG, TID
     Route: 048
     Dates: start: 20131107
  2. RIBASPHERE [Suspect]
     Indication: HEPATITIS C
     Dosage: 3 DF, BID
     Route: 048
     Dates: start: 20131107
  3. RIBASPHERE [Suspect]
     Dosage: 2 DF, BID
     Route: 048
     Dates: start: 201312
  4. RIBASPHERE [Suspect]
     Dosage: 1 DF, BID
     Route: 048
     Dates: start: 20140106
  5. PEGASYS [Suspect]
     Indication: HEPATITIS C
     Dosage: 180 ?G, QW
     Route: 058
     Dates: start: 20131107

REACTIONS (5)
  - Anaemia [Not Recovered/Not Resolved]
  - Influenza like illness [Recovered/Resolved]
  - Lip pain [Recovered/Resolved]
  - Lip dry [Recovered/Resolved]
  - Pruritus [Recovered/Resolved]
